FAERS Safety Report 6053038-5 (Version None)
Quarter: 2009Q1

REPORT INFORMATION
  Report Type: 
  Country: None (occurrence: None)
  Receive Date: 20090127
  Receipt Date: 20090116
  Transmission Date: 20090719
  Serious: Yes (Hospitalization)
  Sender: FDA-Public Use
  Company Number: FR-JNJFOC-20090104401

PATIENT
  Age: 50 Year
  Sex: Male

DRUGS (3)
  1. REMICADE [Suspect]
     Route: 042
  2. REMICADE [Suspect]
     Indication: PSORIASIS
     Dosage: 4 INFUSIONS
     Route: 042
  3. RAPTIVA [Suspect]
     Indication: PSORIASIS
     Route: 058

REACTIONS (3)
  - ARTHRALGIA [None]
  - LUPUS-LIKE SYNDROME [None]
  - MYALGIA [None]
